FAERS Safety Report 4380492-7 (Version None)
Quarter: 2004Q2

REPORT INFORMATION
  Report Type: 
  Country: None (occurrence: None)
  Receive Date: 20040618
  Receipt Date: 20040608
  Transmission Date: 20050107
  Serious: Yes (Other)
  Sender: FDA-Public Use
  Company Number: US-JNJFOC-20040602921

PATIENT
  Age: 18 Year
  Sex: Female
  Weight: 47.8 kg

DRUGS (5)
  1. REMICADE [Suspect]
     Indication: CROHN'S DISEASE
     Dosage: 5-10 MG/KG
     Route: 042
  2. ASACOL [Concomitant]
  3. IMURAN [Concomitant]
  4. FOLIC ACID [Concomitant]
  5. ANTIDEPRESSANTS [Concomitant]

REACTIONS (5)
  - BRUXISM [None]
  - COGNITIVE DISORDER [None]
  - DEMYELINATION [None]
  - PARAESTHESIA [None]
  - SPEECH DISORDER [None]
